FAERS Safety Report 20035404 (Version 1)
Quarter: 2021Q4

REPORT INFORMATION
  Report Type: Spontaneous
  Country: None (occurrence: US)
  Receive Date: 20211104
  Receipt Date: 20211104
  Transmission Date: 20220303
  Serious: No
  Sender: FDA-Public Use
  Company Number: US-Matrixx Initiatives, Inc.-2121493

PATIENT
  Age: 60 Year
  Sex: Female
  Weight: 90.909 kg

DRUGS (2)
  1. HOMEOPATHICS [Suspect]
     Active Substance: HOMEOPATHICS
     Indication: Nasopharyngitis
     Route: 045
     Dates: start: 20211101, end: 20211103
  2. ANTIHISTAMINES NOS [Concomitant]
     Active Substance: ANTIHISTAMINES NOS

REACTIONS (2)
  - Anosmia [None]
  - Ageusia [None]
